FAERS Safety Report 21346588 (Version 2)
Quarter: 2022Q4

REPORT INFORMATION
  Report Type: Spontaneous
  Country: US (occurrence: US)
  Receive Date: 20220917
  Receipt Date: 20221013
  Transmission Date: 20230112
  Serious: No
  Sender: FDA-Public Use
  Company Number: US-JNJFOC-20220861917

PATIENT
  Age: 74 Year
  Sex: Female

DRUGS (1)
  1. WOMENS ROGAINE UNSCENTED [Suspect]
     Active Substance: MINOXIDIL
     Indication: Alopecia
     Dosage: WHAT WAS REQUIRED
     Route: 061
     Dates: start: 2017

REACTIONS (3)
  - Alopecia [Unknown]
  - Product storage error [Unknown]
  - Product container issue [Unknown]

NARRATIVE: CASE EVENT DATE: 20170101
